FAERS Safety Report 6741384-9 (Version None)
Quarter: 2010Q2

REPORT INFORMATION
  Report Type: 
  Country: None (occurrence: None)
  Receive Date: 20100524
  Receipt Date: 20100509
  Transmission Date: 20101027
  Serious: Yes (Other)
  Sender: FDA-Public Use
  Company Number: 2010001885

PATIENT
  Age: 72 Year
  Sex: Female

DRUGS (1)
  1. TARCEVA [Suspect]
     Indication: LUNG NEOPLASM MALIGNANT
     Dosage: (150 MG,QD),ORAL
     Route: 048
     Dates: start: 20090210

REACTIONS (14)
  - CORNEAL DISORDER [None]
  - DERMATITIS ACNEIFORM [None]
  - DIARRHOEA [None]
  - DRY MOUTH [None]
  - ELECTROLYTE IMBALANCE [None]
  - HAIR GROWTH ABNORMAL [None]
  - MUCOUS MEMBRANE DISORDER [None]
  - MUSCLE SPASMS [None]
  - ONYCHOMADESIS [None]
  - PAIN [None]
  - PARONYCHIA [None]
  - RASH [None]
  - TRICHIASIS [None]
  - XERODERMA [None]
